FAERS Safety Report 11911031 (Version 7)
Quarter: 2020Q3

REPORT INFORMATION
  Report Type: Report from Study
  Country: JP (occurrence: JP)
  Receive Date: 20160112
  Receipt Date: 20200915
  Transmission Date: 20201102
  Serious: Yes (Death, Life-Threatening, Hospitalization, Other)
  Sender: FDA-Public Use
  Company Number: JP-INCYTE CORPORATION-2015IN006989

PATIENT

DRUGS (24)
  1. DANAZOL. [Concomitant]
     Active Substance: DANAZOL
     Indication: MYELOFIBROSIS
     Dosage: 200 MG, UNK
     Route: 048
     Dates: end: 20150128
  2. RED CELLS CONCENTRATES?LEUKOCYTES REDUCED [Concomitant]
     Active Substance: HUMAN RED BLOOD CELL
     Dosage: 4 IU, UNK
     Route: 065
     Dates: end: 20150129
  3. RED CELLS CONCENTRATES?LEUKOCYTES REDUCED [Concomitant]
     Active Substance: HUMAN RED BLOOD CELL
     Dosage: 4 IU, UNK
     Route: 065
     Dates: end: 20150217
  4. RED CELLS CONCENTRATES?LEUKOCYTES REDUCED [Concomitant]
     Active Substance: HUMAN RED BLOOD CELL
     Dosage: 4 IU, UNK
     Route: 065
     Dates: end: 20150305
  5. RED CELLS CONCENTRATES?LEUKOCYTES REDUCED [Concomitant]
     Active Substance: HUMAN RED BLOOD CELL
     Dosage: 4 IU, UNK
     Route: 065
     Dates: end: 20150312
  6. RED CELLS CONCENTRATES?LEUKOCYTES REDUCED [Concomitant]
     Active Substance: HUMAN RED BLOOD CELL
     Indication: MYELOFIBROSIS
     Dosage: 4 IU, UNK
     Route: 065
     Dates: end: 20141120
  7. RED CELLS CONCENTRATES?LEUKOCYTES REDUCED [Concomitant]
     Active Substance: HUMAN RED BLOOD CELL
     Dosage: 4 IU, UNK
     Route: 065
     Dates: end: 20141225
  8. RED CELLS CONCENTRATES?LEUKOCYTES REDUCED [Concomitant]
     Active Substance: HUMAN RED BLOOD CELL
     Dosage: 4 IU, UNK
     Route: 065
     Dates: end: 20150226
  9. RED CELLS CONCENTRATES?LEUKOCYTES REDUCED [Concomitant]
     Active Substance: HUMAN RED BLOOD CELL
     Dosage: 4 IU, UNK
     Route: 065
     Dates: end: 20150326
  10. HYDREA [Concomitant]
     Active Substance: HYDROXYUREA
     Indication: MYELOFIBROSIS
     Dosage: 500 MG, UNK
     Route: 048
  11. RED CELLS CONCENTRATES?LEUKOCYTES REDUCED [Concomitant]
     Active Substance: HUMAN RED BLOOD CELL
     Dosage: 4 IU, UNK
     Route: 065
     Dates: end: 20141211
  12. JAKAVI [Suspect]
     Active Substance: RUXOLITINIB
     Dosage: 5 MG, BID
     Route: 048
  13. RED CELLS CONCENTRATES?LEUKOCYTES REDUCED [Concomitant]
     Active Substance: HUMAN RED BLOOD CELL
     Dosage: 4 IU, UNK
     Route: 065
     Dates: end: 20150205
  14. RED CELLS CONCENTRATES?LEUKOCYTES REDUCED [Concomitant]
     Active Substance: HUMAN RED BLOOD CELL
     Dosage: 4 IU, UNK
     Route: 065
     Dates: end: 20150402
  15. RED CELLS CONCENTRATES?LEUKOCYTES REDUCED [Concomitant]
     Active Substance: HUMAN RED BLOOD CELL
     Dosage: 4 IU, UNK
     Route: 065
     Dates: end: 20150108
  16. RED CELLS CONCENTRATES?LEUKOCYTES REDUCED [Concomitant]
     Active Substance: HUMAN RED BLOOD CELL
     Dosage: 4 IU, UNK
     Route: 065
     Dates: end: 20150115
  17. RED CELLS CONCENTRATES?LEUKOCYTES REDUCED [Concomitant]
     Active Substance: HUMAN RED BLOOD CELL
     Dosage: 4 IU, UNK
     Route: 065
     Dates: end: 20150409
  18. RED CELLS CONCENTRATES?LEUKOCYTES REDUCED [Concomitant]
     Active Substance: HUMAN RED BLOOD CELL
     Dosage: 4 IU, UNK
     Route: 065
     Dates: end: 20150423
  19. FLUCONAZOLE. [Concomitant]
     Active Substance: FLUCONAZOLE
     Indication: PRODUCT USED FOR UNKNOWN INDICATION
     Dosage: 200 MG, UNK
     Route: 048
  20. RED CELLS CONCENTRATES?LEUKOCYTES REDUCED [Concomitant]
     Active Substance: HUMAN RED BLOOD CELL
     Dosage: 4 IU, UNK
     Route: 065
     Dates: end: 20141127
  21. RED CELLS CONCENTRATES?LEUKOCYTES REDUCED [Concomitant]
     Active Substance: HUMAN RED BLOOD CELL
     Dosage: 4 IU, UNK
     Route: 065
     Dates: end: 20150416
  22. JAKAVI [Suspect]
     Active Substance: RUXOLITINIB
     Indication: MYELOFIBROSIS
     Dosage: 5 MG, QD
     Route: 048
     Dates: start: 20150326, end: 20150408
  23. PREDONINE [Suspect]
     Active Substance: PREDNISOLONE
     Indication: MYELOFIBROSIS
     Dosage: 10 MG, QD
     Route: 048
  24. BAKTAR [Concomitant]
     Active Substance: SULFAMETHOXAZOLE\TRIMETHOPRIM
     Indication: PRODUCT USED FOR UNKNOWN INDICATION
     Dosage: 1 G, UNK
     Route: 048

REACTIONS (8)
  - Skin erosion [Unknown]
  - Shock [Fatal]
  - Cellulitis [Unknown]
  - Diarrhoea [Not Recovered/Not Resolved]
  - Hypotension [Not Recovered/Not Resolved]
  - Platelet count decreased [Not Recovered/Not Resolved]
  - Leukaemia [Not Recovered/Not Resolved]
  - Back pain [Unknown]

NARRATIVE: CASE EVENT DATE: 20150330
